FAERS Safety Report 8911812 (Version 2)
Quarter: 2012Q4

REPORT INFORMATION
  Report Type: 
  Country: CH (occurrence: CH)
  Receive Date: 20121116
  Receipt Date: 20121128
  Transmission Date: 20130627
  Serious: Yes (Other)
  Sender: FDA-Public Use
  Company Number: CH-JNJFOC-20121104938

PATIENT
  Age: 54 Year
  Sex: Male

DRUGS (5)
  1. REMICADE [Suspect]
     Indication: ANKYLOSING SPONDYLITIS
     Dosage: vial; dosing interval: 6-8 (units unspecified)
     Route: 042
     Dates: start: 20080501, end: 20121001
  2. REMICADE [Suspect]
     Indication: CROHN^S DISEASE
     Dosage: vial; dosing interval: 6-8 (units unspecified)
     Route: 042
     Dates: start: 20080501, end: 20121001
  3. AZATHIOPRINE [Concomitant]
     Indication: CROHN^S DISEASE
     Dosage: Dose: 100 (units unspecified)

Start date: 01-unspecified-2005

Stop Date: 08-unspecified-2008
     Route: 065
     Dates: start: 2005, end: 2008
  4. SALAZOPYRINE [Concomitant]
     Indication: ANKYLOSING SPONDYLITIS
     Dosage: 4-6 grams

Start Date: 04-unspecified-2008
     Route: 065
     Dates: start: 200804
  5. SALAZOPYRINE [Concomitant]
     Indication: CROHN^S DISEASE
     Dosage: 4-6 grams

Start Date: 04-unspecified-2008
     Route: 065
     Dates: start: 200804

REACTIONS (1)
  - Testicular cancer metastatic [Unknown]
